FAERS Safety Report 8393107-8 (Version None)
Quarter: 2012Q2

REPORT INFORMATION
  Report Type: 
  Country: None (occurrence: None)
  Receive Date: 20120529
  Receipt Date: 20120405
  Transmission Date: 20120825
  Serious: No
  Sender: FDA-Public Use
  Company Number: US-ABBOTT-12P-163-0923023-00

PATIENT
  Sex: Female

DRUGS (2)
  1. ANDROGEL [Suspect]
     Indication: ACCIDENTAL EXPOSURE
  2. UNKNOWN MEDICATIONS [Concomitant]
     Indication: PRODUCT USED FOR UNKNOWN INDICATION

REACTIONS (2)
  - PRURITUS [None]
  - ACCIDENTAL EXPOSURE [None]
